FAERS Safety Report 8265609-6 (Version None)
Quarter: 2012Q2

REPORT INFORMATION
  Report Type: 
  Country: None (occurrence: None)
  Receive Date: 20120406
  Receipt Date: 20120322
  Transmission Date: 20120825
  Serious: Yes (Hospitalization)
  Sender: FDA-Public Use
  Company Number: US-ACTELION-A-NJ2011-58672

PATIENT

DRUGS (19)
  1. REVATIO [Concomitant]
  2. XIFAXAN [Concomitant]
  3. ZOFRAN [Concomitant]
  4. MIRAPEX [Concomitant]
  5. LASIX [Concomitant]
  6. REGLAN [Concomitant]
  7. TRACLEER [Suspect]
     Dosage: 62.5 MG, BID
     Route: 048
     Dates: start: 20030519
  8. EPOPROSTENOL SODIUM [Suspect]
     Indication: PULMONARY ARTERIAL HYPERTENSION
     Dosage: 64 NG/KG, PER MIN
     Route: 041
     Dates: start: 20101012
  9. ATIVAN [Concomitant]
  10. TRACLEER [Suspect]
     Indication: PULMONARY ARTERIAL HYPERTENSION
     Dosage: 125 MG, BID
     Route: 048
  11. SINGULAIR [Concomitant]
  12. PROTONIX [Concomitant]
  13. AMBIEN [Concomitant]
  14. POTASSIUM CHLORIDE [Concomitant]
  15. ALDACTONE [Concomitant]
  16. CARDIZEM CD [Concomitant]
  17. NORVASC [Concomitant]
  18. SYNTHROID [Concomitant]
  19. HYOSCYAMINE [Concomitant]

REACTIONS (9)
  - HYPOKALAEMIA [None]
  - ASTHENIA [None]
  - PALPITATIONS [None]
  - DIARRHOEA [None]
  - VOMITING [None]
  - SENSATION OF HEAVINESS [None]
  - NAUSEA [None]
  - FLUSHING [None]
  - DIZZINESS [None]
